FAERS Safety Report 19355273 (Version 1)
Quarter: 2021Q2

REPORT INFORMATION
  Report Type: Spontaneous
  Country: US (occurrence: US)
  Receive Date: 20210601
  Receipt Date: 20210601
  Transmission Date: 20210717
  Serious: No
  Sender: FDA-Public Use
  Company Number: US-DRREDDYS-USA/USA/21/0135959

PATIENT
  Age: 65 Year
  Sex: Female
  Weight: 70.65 kg

DRUGS (1)
  1. HABITROL [Suspect]
     Active Substance: NICOTINE
     Indication: TOBACCO USER
     Route: 062
     Dates: start: 20210521

REACTIONS (3)
  - Treatment noncompliance [Unknown]
  - Administration site rash [Unknown]
  - Product adhesion issue [Unknown]
